FAERS Safety Report 10027406 (Version 1)
Quarter: 2014Q1

REPORT INFORMATION
  Report Type: Spontaneous
  Country: US (occurrence: US)
  Receive Date: 20140321
  Receipt Date: 20140321
  Transmission Date: 20141002
  Serious: No
  Sender: FDA-Public Use
  Company Number: US-PFIZER INC-2014077960

PATIENT
  Age: 78 Year
  Sex: Female

DRUGS (5)
  1. LIPITOR [Suspect]
     Dosage: 40 MG, AT BEDTIME
     Route: 048
  2. FLAGYL [Suspect]
     Dosage: UNK
  3. NORVASC [Suspect]
     Dosage: 5 MG, IN THE MORNING
     Route: 048
  4. METOPROLOL TARTRATE [Suspect]
     Dosage: 25 MG, 2X/DAY
     Route: 048
  5. LEVAQUIN [Suspect]
     Dosage: UNK

REACTIONS (1)
  - Drug hypersensitivity [Unknown]
